FAERS Safety Report 24050570 (Version 3)
Quarter: 2024Q3

REPORT INFORMATION
  Report Type: Spontaneous
  Country: IE (occurrence: IE)
  Receive Date: 20240704
  Receipt Date: 20240801
  Transmission Date: 20241016
  Serious: Yes (Death)
  Sender: TEVA
  Company Number: IE-TEVA-2022-IE-2013855

PATIENT
  Age: 40 Year
  Sex: Female

DRUGS (1)
  1. COPAXONE [Suspect]
     Active Substance: GLATIRAMER ACETATE
     Indication: Multiple sclerosis
     Route: 065
     Dates: start: 2021

REACTIONS (5)
  - Anaphylactic shock [Fatal]
  - Cerebral ischaemia [Fatal]
  - Cardiac arrest [Fatal]
  - Brain hypoxia [Fatal]
  - Injection site reaction [Unknown]

NARRATIVE: CASE EVENT DATE: 20210101
